FAERS Safety Report 7744547-9 (Version None)
Quarter: 2011Q3

REPORT INFORMATION
  Report Type: 
  Country: None (occurrence: None)
  Receive Date: 20110912
  Receipt Date: 20110901
  Transmission Date: 20111222
  Serious: Yes (Hospitalization)
  Sender: FDA-Public Use
  Company Number: US-BAYER-2011-075432

PATIENT
  Age: 17 Year
  Sex: Female
  Weight: 48.526 kg

DRUGS (47)
  1. NEURONTIN [Concomitant]
     Indication: ANALGESIC THERAPY
     Dosage: 600 MG, UNK
     Dates: start: 20040101
  2. ADDERALL 5 [Concomitant]
     Indication: ATTENTION DEFICIT/HYPERACTIVITY DISORDER
     Dosage: UNK
     Dates: start: 20080101, end: 20100101
  3. NAPROXEN (ALEVE) [Concomitant]
     Dosage: UNK
     Dates: start: 20040101
  4. XANAX [Concomitant]
     Indication: ANXIETY
     Dosage: UNK
     Dates: start: 20060101, end: 20100101
  5. YAZ [Suspect]
     Indication: CONTRACEPTION
     Dosage: UNK UNK, QD
     Route: 048
     Dates: start: 20080101, end: 20100101
  6. YAZ [Suspect]
  7. NAPROSYN [Concomitant]
     Dosage: UNK
     Dates: start: 20040101
  8. CYMBALTA [Concomitant]
     Indication: DEPRESSION
  9. ZOLOFT [Concomitant]
     Indication: DEPRESSION
  10. PROZAC [Concomitant]
     Indication: ANXIETY
     Dosage: UNK
     Dates: start: 20060101, end: 20100101
  11. TRAMADOL HYDROCHLORIDE [Concomitant]
     Indication: ANALGESIC THERAPY
     Dosage: UNK
     Dates: start: 20080101
  12. FROVATRIPTAN [Concomitant]
     Dosage: UNK
     Dates: start: 20040101
  13. VICODIN [Concomitant]
  14. YAZ [Suspect]
     Indication: PREMENSTRUAL SYNDROME
  15. CEFTIN [Concomitant]
     Dosage: UNK
     Dates: start: 20040101
  16. CEPHALEXIN [Concomitant]
     Dosage: UNK
     Dates: start: 20040101
  17. ZOLOFT [Concomitant]
     Indication: ANXIETY
     Dosage: UNK
     Dates: start: 20060101, end: 20100101
  18. PROZAC [Concomitant]
     Indication: DEPRESSION
  19. SKELAXIN [Concomitant]
     Indication: MUSCLE SPASMS
     Dosage: UNK
     Dates: start: 20060101, end: 20110101
  20. HYDROCODONE BITARTRATE AND ACETAMINOPHEN [Concomitant]
     Indication: ANALGESIC THERAPY
     Dosage: UNK
     Dates: start: 20081102
  21. ADVIL LIQUI-GELS [Concomitant]
     Dosage: UNK
     Dates: start: 20040101
  22. IBUPROFEN [Concomitant]
     Dosage: UNK
     Dates: start: 20040101
  23. KLONOPIN [Concomitant]
     Dosage: UNK
     Dates: start: 20060101, end: 20100101
  24. SODIUM CHLORIDE [Concomitant]
  25. MILK OF MAGNESIA TAB [Concomitant]
  26. PREVACID [Concomitant]
     Indication: GASTROOESOPHAGEAL REFLUX DISEASE
     Dosage: 30 MG, UNK
     Dates: start: 20081021
  27. PROTONIX [Concomitant]
  28. DURADRIN [Concomitant]
     Dosage: UNK
     Dates: start: 20040101
  29. MIDRIN [Concomitant]
     Dosage: UNK
     Dates: start: 20040101
  30. YAZ [Suspect]
     Indication: ACNE
  31. IMITREX [Concomitant]
     Dosage: UNK
     Dates: start: 20040101
  32. FLEXERIL [Concomitant]
     Indication: MUSCLE SPASMS
     Dosage: UNK
     Dates: start: 20060101, end: 20110101
  33. STRATTERA [Concomitant]
     Indication: ATTENTION DEFICIT/HYPERACTIVITY DISORDER
     Dosage: UNK
     Dates: start: 20080101, end: 20100101
  34. XANAX [Concomitant]
     Indication: DEPRESSION
  35. MORPHINE [Concomitant]
  36. PERCOCET [Concomitant]
  37. AZITHROMYCIN [Concomitant]
     Dosage: UNK
     Dates: start: 20040101
  38. NAPROXEN [Concomitant]
     Dosage: UNK
     Dates: start: 20040101
  39. CYMBALTA [Concomitant]
     Indication: ANXIETY
     Dosage: UNK
     Dates: start: 20060101, end: 20100101
  40. NSAID'S [Concomitant]
     Indication: ANALGESIC THERAPY
     Dosage: UNK, PRN
  41. MAXALT [Concomitant]
     Dosage: UNK
     Dates: start: 20040101
  42. BUSPAR [Concomitant]
     Dosage: UNK
     Dates: start: 20060101, end: 20100101
  43. CELEXA [Concomitant]
     Dosage: UNK
     Dates: start: 20060101, end: 20100101
  44. GARDASIL [Concomitant]
     Dosage: UNK
     Dates: start: 20080304
  45. NEXIUM [Concomitant]
     Dosage: UNK
     Dates: start: 20080507
  46. ZOFRAN [Concomitant]
  47. TYLENOL-500 [Concomitant]

REACTIONS (5)
  - GALLBLADDER DISORDER [None]
  - PAIN [None]
  - PANCREATITIS [None]
  - CHOLECYSTITIS CHRONIC [None]
  - SPHINCTER OF ODDI DYSFUNCTION [None]
